FAERS Safety Report 7391105-4 (Version None)
Quarter: 2011Q1

REPORT INFORMATION
  Report Type: 
  Country: None (occurrence: None)
  Receive Date: 20110324
  Receipt Date: 20110311
  Transmission Date: 20110831
  Serious: Yes (Hospitalization)
  Sender: FDA-Public Use
  Company Number: 2011P1004917

PATIENT
  Age: 39 Year
  Sex: Male
  Weight: 83.9154 kg

DRUGS (4)
  1. GEODON [Suspect]
     Dosage: QD;PO
     Route: 048
  2. DEXTROAMPHETAMINE SACCHARATE, AMPHETAMINE ASPARTATE MONOHYDRATE, DEXRO [Suspect]
     Indication: NARCOLEPSY
     Dosage: 60 MG;QD
     Dates: start: 20110220, end: 20110307
  3. DEXTROAMPHETAMINE SACCHARATE, AMPHETAMINE ASPARTATE MONOHYDRATE, DEXRO [Suspect]
     Indication: DEPRESSION
     Dosage: 60 MG;QD
     Dates: start: 20110220, end: 20110307
  4. DEXTROAMPHETAMINE SACCHARATE, AMPHETAMINE ASPARTATE MONOHYDRATE, DEXRO [Suspect]
     Indication: ATTENTION DEFICIT/HYPERACTIVITY DISORDER
     Dosage: 60 MG;QD
     Dates: start: 20110220, end: 20110307

REACTIONS (6)
  - PRODUCT QUALITY ISSUE [None]
  - HYPERSENSITIVITY [None]
  - DRUG DISPENSING ERROR [None]
  - PRODUCT TASTE ABNORMAL [None]
  - DRUG INEFFECTIVE [None]
  - PRODUCT SUBSTITUTION ISSUE [None]
